FAERS Safety Report 13307153 (Version 4)
Quarter: 2017Q2

REPORT INFORMATION
  Report Type: Spontaneous
  Country: JP (occurrence: JP)
  Receive Date: 20170308
  Receipt Date: 20170413
  Transmission Date: 20170830
  Serious: Yes (Other)
  Sender: FDA-Public Use
  Company Number: JP-ASTRAZENECA-2017SE13011

PATIENT
  Age: 703 Month
  Sex: Male
  Weight: 72.5 kg

DRUGS (3)
  1. ZETIA [Concomitant]
     Active Substance: EZETIMIBE
  2. CRESTOR [Suspect]
     Active Substance: ROSUVASTATIN CALCIUM
     Indication: HYPERLIPIDAEMIA
     Route: 048
     Dates: start: 20111108, end: 20170131
  3. CRESTOR [Suspect]
     Active Substance: ROSUVASTATIN CALCIUM
     Indication: HYPERCHOLESTEROLAEMIA
     Route: 048
     Dates: start: 20111108, end: 20170131

REACTIONS (3)
  - Muscle spasms [Recovered/Resolved]
  - Rhabdomyolysis [Recovered/Resolved]
  - Pain in extremity [Recovered/Resolved]

NARRATIVE: CASE EVENT DATE: 201611
